FAERS Safety Report 6761150-8 (Version None)
Quarter: 2010Q2

REPORT INFORMATION
  Report Type: 
  Country: None (occurrence: None)
  Receive Date: 20100608
  Receipt Date: 20100527
  Transmission Date: 20101027
  Serious: Yes (Hospitalization, Other)
  Sender: FDA-Public Use
  Company Number: US-ELI_LILLY_AND_COMPANY-US201005003167

PATIENT
  Sex: Female
  Weight: 97.959 kg

DRUGS (3)
  1. BYETTA [Suspect]
     Route: 058
  2. MICARDIS HCT [Concomitant]
     Indication: HYPERTENSION
  3. ACE INHIBITOR NOS [Concomitant]

REACTIONS (1)
  - PANCREATITIS [None]
